FAERS Safety Report 6871013-5 (Version None)
Quarter: 2010Q3

REPORT INFORMATION
  Report Type: 
  Country: None (occurrence: None)
  Receive Date: 20100723
  Receipt Date: 20100712
  Transmission Date: 20110219
  Serious: Yes (Hospitalization)
  Sender: FDA-Public Use
  Company Number: SE-JNJFOC-20100703522

PATIENT
  Age: 26 Year
  Sex: Female

DRUGS (5)
  1. REMICADE [Suspect]
     Indication: COLITIS ULCERATIVE
     Route: 042
  2. IMUREL [Suspect]
     Indication: COLITIS ULCERATIVE
     Route: 048
  3. PREDNISOLONE [Suspect]
     Indication: COLITIS ULCERATIVE
     Route: 048
  4. PENTASA [Concomitant]
  5. ASACOL [Concomitant]

REACTIONS (3)
  - BURSITIS [None]
  - PNEUMOCYSTIS JIROVECI INFECTION [None]
  - STAPHYLOCOCCAL INFECTION [None]
